FAERS Safety Report 10484023 (Version 1)
Quarter: 2014Q3

REPORT INFORMATION
  Report Type: Spontaneous
  Country: US (occurrence: None)
  Receive Date: 20140926
  Receipt Date: 20140926
  Transmission Date: 20150326
  Serious: Yes (Other)
  Sender: FDA-Public Use
  Company Number: 2014HINLIT0865

PATIENT
  Age: 60 Year
  Sex: Male

DRUGS (9)
  1. HYDROCORTISONE. [Concomitant]
     Active Substance: HYDROCORTISONE
  2. FLUTICASONE PROPIONATE. [Suspect]
     Active Substance: FLUTICASONE PROPIONATE
     Indication: PRODUCT USED FOR UNKNOWN INDICATION
     Dosage: 1000, UNKNOWN
  3. ZIDOVUDINE. [Suspect]
     Active Substance: ZIDOVUDINE
     Indication: HIV INFECTION
  4. RITONAVIR (RITONAVIR) [Suspect]
     Active Substance: RITONAVIR
     Indication: HIV INFECTION
  5. TENOFOVIR (TENOFOVIR) UNKNOWN [Suspect]
     Active Substance: TENOFOVIR
     Indication: HIV INFECTION
  6. ALBUTEROL. [Concomitant]
     Active Substance: ALBUTEROL
  7. LAMIVUDINE (LAMIVUDINE) UNKNOWN [Suspect]
     Active Substance: LAMIVUDINE
     Indication: HIV INFECTION
  8. ATAZANAVIR [Suspect]
     Active Substance: ATAZANAVIR
     Indication: HIV INFECTION
  9. SALMETEROL [Concomitant]
     Active Substance: SALMETEROL

REACTIONS (6)
  - Cushing^s syndrome [None]
  - Osteonecrosis [None]
  - Femur fracture [None]
  - Drug interaction [None]
  - Spinal fracture [None]
  - Central obesity [None]
